FAERS Safety Report 16698454 (Version 5)
Quarter: 2019Q3

REPORT INFORMATION
  Report Type: Spontaneous
  Country: US (occurrence: US)
  Receive Date: 20190813
  Receipt Date: 20190927
  Transmission Date: 20191004
  Serious: Yes (Hospitalization, Disabling, Other)
  Sender: FDA-Public Use
  Company Number: US-009507513-1812USA012491

PATIENT
  Sex: Male
  Weight: 78.01 kg

DRUGS (3)
  1. PRINIVIL [Suspect]
     Active Substance: LISINOPRIL
     Indication: HYPERTENSION
     Dosage: 10 MILLIGRAM A WEEK
     Route: 048
     Dates: start: 201502
  2. ZOSTAVAX [Suspect]
     Active Substance: VARICELLA-ZOSTER VIRUS STRAIN OKA/MERCK LIVE ANTIGEN
     Indication: PROPHYLAXIS
  3. ZOSTAVAX [Suspect]
     Active Substance: VARICELLA-ZOSTER VIRUS STRAIN OKA/MERCK LIVE ANTIGEN
     Indication: ROUTINE HEALTH MAINTENANCE
     Route: 065
     Dates: start: 20141115

REACTIONS (28)
  - Carotid artery thrombosis [Unknown]
  - Carotid artery stenosis [Not Recovered/Not Resolved]
  - Deafness [Not Recovered/Not Resolved]
  - Loss of personal independence in daily activities [Unknown]
  - Coordination abnormal [Unknown]
  - Blood pressure systolic decreased [Unknown]
  - Left ventricular hypertrophy [Unknown]
  - Hyperglycaemia [Unknown]
  - Hypersensitivity [Unknown]
  - Bronchitis [Unknown]
  - Carotid artery occlusion [Unknown]
  - Aphasia [Not Recovered/Not Resolved]
  - Blood pressure systolic increased [Not Recovered/Not Resolved]
  - Hypertensive emergency [Recovering/Resolving]
  - Dyslipidaemia [Unknown]
  - Hypertension [Recovered/Resolved]
  - High density lipoprotein increased [Unknown]
  - Body temperature decreased [Not Recovered/Not Resolved]
  - Ischaemic stroke [Not Recovered/Not Resolved]
  - Cerebrovascular accident [Unknown]
  - Visual impairment [Unknown]
  - Increased tendency to bruise [Unknown]
  - Joint injury [Unknown]
  - Memory impairment [Unknown]
  - Hemianopia homonymous [Not Recovered/Not Resolved]
  - Muscular weakness [Unknown]
  - Speech disorder [Not Recovered/Not Resolved]
  - Asthma [Unknown]

NARRATIVE: CASE EVENT DATE: 2015
